FAERS Safety Report 4963716-4 (Version None)
Quarter: 2006Q1

REPORT INFORMATION
  Report Type: 
  Country: None (occurrence: None)
  Receive Date: 20060330
  Receipt Date: 20060109
  Transmission Date: 20060701
  Serious: Yes (Life-Threatening, Hospitalization)
  Sender: FDA-Public Use
  Company Number: NO200601000019

PATIENT
  Age: 15 Year
  Sex: Female

DRUGS (4)
  1. ATOMOXETINE HYDROCHLORIDE (ATOMOXETINE HYDROCHLORIDE) CAPSULE [Suspect]
     Indication: ATTENTION DEFICIT/HYPERACTIVITY DISORDER
     Dosage: SEE IMAGE
     Route: 048
     Dates: start: 20051101, end: 20051124
  2. ATOMOXETINE HYDROCHLORIDE (ATOMOXETINE HYDROCHLORIDE) CAPSULE [Suspect]
     Indication: ATTENTION DEFICIT/HYPERACTIVITY DISORDER
     Dosage: SEE IMAGE
     Route: 048
     Dates: start: 20051124, end: 20051124
  3. ATOMOXETINE HYDROCHLORIDE (ATOMOXETINE HYDROCHLORIDE) CAPSULE [Suspect]
     Indication: ATTENTION DEFICIT/HYPERACTIVITY DISORDER
     Dosage: SEE IMAGE
     Route: 048
     Dates: start: 20051101
  4. RITALIN [Concomitant]

REACTIONS (4)
  - ALCOHOL USE [None]
  - DEPRESSION [None]
  - MULTIPLE DRUG OVERDOSE [None]
  - SUICIDE ATTEMPT [None]
